FAERS Safety Report 22148967 (Version 1)
Quarter: 2023Q1

REPORT INFORMATION
  Report Type: Spontaneous
  Country: US (occurrence: US)
  Receive Date: 20230328
  Receipt Date: 20230328
  Transmission Date: 20230417
  Serious: No
  Sender: FDA-Public Use
  Company Number: US-009507513-2303USA007149

PATIENT
  Age: 41 Year

DRUGS (2)
  1. TRUSOPT [Suspect]
     Active Substance: DORZOLAMIDE HYDROCHLORIDE
     Indication: Retinoschisis congenital
     Dosage: 2% TWO TO THREE TIMES
     Route: 047
  2. TRUSOPT [Suspect]
     Active Substance: DORZOLAMIDE HYDROCHLORIDE
     Dosage: THREE DROPS PER DAY IN BOTH EYES
     Route: 047
     Dates: start: 2015

REACTIONS (1)
  - Off label use [Unknown]
